FAERS Safety Report 5778253-7 (Version None)
Quarter: 2008Q2

REPORT INFORMATION
  Report Type: 
  Country: None (occurrence: None)
  Receive Date: 20080619
  Receipt Date: 20080612
  Transmission Date: 20081010
  Serious: Yes (Other)
  Sender: FDA-Public Use
  Company Number: US-BAYER-200810112BCC

PATIENT
  Age: 12 Year
  Sex: Male

DRUGS (1)
  1. ALEVE [Suspect]
     Indication: PROCEDURAL PAIN
     Route: 048

REACTIONS (4)
  - CHEST DISCOMFORT [None]
  - CHEST PAIN [None]
  - DYSPNOEA [None]
  - PAINFUL RESPIRATION [None]
